FAERS Safety Report 26072359 (Version 1)
Quarter: 2025Q4

REPORT INFORMATION
  Report Type: Spontaneous
  Country: CN (occurrence: CN)
  Receive Date: 20251120
  Receipt Date: 20251120
  Transmission Date: 20260117
  Serious: Yes (Disabling)
  Sender: BEIGENE
  Company Number: CN-BEIGENE-BGN-2025-020148

PATIENT
  Age: 78 Year
  Sex: Male
  Weight: 59 kg

DRUGS (8)
  1. TISLELIZUMAB [Suspect]
     Active Substance: TISLELIZUMAB
     Indication: Lung neoplasm malignant
     Dosage: 200 MILLIGRAM, Q3WK
     Dates: start: 20250212, end: 20251009
  2. TISLELIZUMAB [Suspect]
     Active Substance: TISLELIZUMAB
     Dosage: 200 MILLIGRAM, Q3WK
     Route: 041
     Dates: start: 20250212, end: 20251009
  3. TISLELIZUMAB [Suspect]
     Active Substance: TISLELIZUMAB
     Dosage: 200 MILLIGRAM, Q3WK
     Route: 041
     Dates: start: 20250212, end: 20251009
  4. TISLELIZUMAB [Suspect]
     Active Substance: TISLELIZUMAB
     Dosage: 200 MILLIGRAM, Q3WK
     Dates: start: 20250212, end: 20251009
  5. CATEQUENTINIB [Concomitant]
     Active Substance: CATEQUENTINIB
     Indication: Lung neoplasm malignant
     Dosage: 8 MILLIGRAM, QD
     Dates: start: 20250212
  6. CATEQUENTINIB [Concomitant]
     Active Substance: CATEQUENTINIB
     Dosage: 8 MILLIGRAM, QD
     Route: 048
     Dates: start: 20250212
  7. CATEQUENTINIB [Concomitant]
     Active Substance: CATEQUENTINIB
     Dosage: 8 MILLIGRAM, QD
     Dates: start: 20250729
  8. CATEQUENTINIB [Concomitant]
     Active Substance: CATEQUENTINIB
     Dosage: 8 MILLIGRAM, QD
     Route: 048
     Dates: start: 20250729

REACTIONS (1)
  - Chronic kidney disease [Recovering/Resolving]

NARRATIVE: CASE EVENT DATE: 20251111
